FAERS Safety Report 6335505-X (Version None)
Quarter: 2009Q3

REPORT INFORMATION
  Report Type: 
  Country: None (occurrence: None)
  Receive Date: 20090831
  Receipt Date: 20090819
  Transmission Date: 20100115
  Serious: Yes (Other)
  Sender: FDA-Public Use
  Company Number: US-PFIZER INC-2009195509

PATIENT
  Sex: Female
  Weight: 75.737 kg

DRUGS (4)
  1. NEURONTIN [Suspect]
     Indication: MIGRAINE
     Dosage: FREQUENCY: 3X/DAY, EVERY DAY;
  2. BENICAR [Concomitant]
     Indication: HYPERTENSION
     Dosage: UNK
  3. ZEGERID [Concomitant]
     Indication: GASTROOESOPHAGEAL REFLUX DISEASE
     Dosage: UNK
  4. ADVAIR HFA [Concomitant]
     Indication: ASTHMA
     Dosage: UNK

REACTIONS (1)
  - SYSTEMIC LUPUS ERYTHEMATOSUS [None]
